FAERS Safety Report 10725316 (Version 1)
Quarter: 2015Q1

REPORT INFORMATION
  Report Type: Spontaneous
  Country: CA (occurrence: CA)
  Receive Date: 20150120
  Receipt Date: 20150120
  Transmission Date: 20150721
  Serious: Yes (Other)
  Sender: FDA-Public Use
  Company Number: PHHY2015CA004189

PATIENT
  Age: 34 Year
  Sex: Female
  Weight: 77 kg

DRUGS (4)
  1. EPHEDRINE [Suspect]
     Active Substance: EPHEDRINE
     Indication: PROPHYLAXIS
     Dosage: 5 MG, TID
     Route: 042
  2. BUPIVACAINE [Suspect]
     Active Substance: BUPIVACAINE
     Indication: SPINAL ANAESTHESIA
     Dosage: 5 ML, UNK
     Route: 037
  3. LIDOCAINE. [Suspect]
     Active Substance: LIDOCAINE
     Indication: SPINAL ANAESTHESIA
     Dosage: 3 ML, UNK
     Route: 037
  4. FENTANYL. [Suspect]
     Active Substance: FENTANYL
     Indication: SPINAL ANAESTHESIA
     Dosage: 5 UG/ML, UNK
     Route: 037

REACTIONS (6)
  - Incorrect route of drug administration [Unknown]
  - Maternal exposure during pregnancy [Unknown]
  - Dyspnoea [Recovered/Resolved]
  - Blood pressure decreased [Unknown]
  - Limb discomfort [Recovered/Resolved]
  - Hypoaesthesia [Recovered/Resolved]
